FAERS Safety Report 9739305 (Version 3)
Quarter: 2013Q4

REPORT INFORMATION
  Report Type: Spontaneous
  Country: FR (occurrence: FR)
  Receive Date: 20131209
  Receipt Date: 20131213
  Transmission Date: 20140711
  Serious: Yes (Hospitalization)
  Sender: FDA-Public Use
  Company Number: FR-PFIZER INC-2012231853

PATIENT
  Age: 4 Year
  Sex: Male
  Weight: 21 kg

DRUGS (8)
  1. TAZOCILLINE [Suspect]
     Indication: CHOLANGITIS
     Dosage: 320 MG/KG, 3X/DAY
     Route: 042
     Dates: start: 20120604, end: 20120616
  2. TARGOCID [Suspect]
     Dosage: UNK
     Route: 042
     Dates: start: 20120615, end: 20120616
  3. URSOLVAN-200 [Concomitant]
     Dosage: 200 MG, 2X/DAY
     Route: 048
  4. AVLOCARDYL [Concomitant]
     Dosage: 40 MG, 2X/DAY
     Route: 048
  5. AMIKLIN [Concomitant]
     Dosage: 15 MG/KG, 1X/DAY
     Route: 042
     Dates: start: 20120614
  6. VANCOMYCIN [Concomitant]
     Dosage: UNK
     Route: 042
     Dates: start: 20120614, end: 20120614
  7. RIFADINE [Concomitant]
     Dosage: 25 MG/KG, DAILY
     Dates: start: 20120615
  8. FOSFOMYCIN [Concomitant]
     Dosage: 300 MG/KG, DAILY
     Dates: start: 20120615

REACTIONS (6)
  - Hyperthermia [Recovered/Resolved]
  - Thrombocytopenia [Recovered/Resolved]
  - Chills [Recovered/Resolved]
  - Agranulocytosis [Recovered/Resolved]
  - Leukopenia [Recovered/Resolved]
  - Aplasia [Recovered/Resolved]
